FAERS Safety Report 9759693 (Version 2)
Quarter: 2014Q2

REPORT INFORMATION
  Report Type: Spontaneous
  Country: IT (occurrence: None)
  Receive Date: 20131212
  Receipt Date: 20140402
  Transmission Date: 20141212
  Serious: Yes (Hospitalization)
  Sender: FDA-Public Use
  Company Number: AUR-APL-2013-10265

PATIENT
  Age: 86 Year
  Sex: Female

DRUGS (6)
  1. BISOPROLOL [Suspect]
     Indication: HYPERTENSION
     Dosage: 1 D
     Route: 048
  2. FLECAINIDE [Suspect]
     Indication: SUPRAVENTRICULAR TACHYCARDIA
     Dosage: 1 D
     Route: 048
     Dates: start: 20080201, end: 20130817
  3. CLEXANE (ENOXAPARIN SODIUM) [Concomitant]
  4. DUROGESIC (FENTANYL) [Concomitant]
  5. METFORMIN HYDROCHLORIDE [Concomitant]
  6. LANSOPRAZOLE [Concomitant]

REACTIONS (2)
  - Bradyarrhythmia [None]
  - Syncope [None]
